FAERS Safety Report 16253591 (Version 1)
Quarter: 2019Q2

REPORT INFORMATION
  Report Type: Report from Study
  Country: None (occurrence: BR)
  Receive Date: 20190430
  Receipt Date: 20190430
  Transmission Date: 20190711
  Serious: Yes (Other)
  Sender: FDA-Public Use
  Company Number: BR-ABBVIE-19K-020-2761900-00

PATIENT
  Sex: Female

DRUGS (3)
  1. HUMIRA [Suspect]
     Active Substance: ADALIMUMAB
     Indication: ANKYLOSING SPONDYLITIS
     Route: 058
     Dates: start: 20181219
  2. CEFALIV [Concomitant]
     Indication: MIGRAINE
  3. RIVOTRIL [Concomitant]
     Active Substance: CLONAZEPAM
     Indication: PANIC ATTACK

REACTIONS (7)
  - Somnolence [Recovering/Resolving]
  - Dizziness [Recovering/Resolving]
  - Blindness [Recovering/Resolving]
  - Injection site pain [Unknown]
  - Gastric disorder [Recovering/Resolving]
  - Migraine [Unknown]
  - Daydreaming [Recovering/Resolving]
